FAERS Safety Report 6115451-7 (Version None)
Quarter: 2009Q1

REPORT INFORMATION
  Report Type: 
  Country: None (occurrence: None)
  Receive Date: 20090313
  Receipt Date: 20090303
  Transmission Date: 20090719
  Serious: Yes (Hospitalization)
  Sender: FDA-Public Use
  Company Number: US-AMGEN-US336582

PATIENT
  Age: 56 Year
  Sex: Male
  Weight: 115 kg

DRUGS (7)
  1. NEULASTA [Suspect]
     Indication: CHEMOTHERAPY
     Route: 058
     Dates: start: 20081021, end: 20090207
  2. BORTEZOMIB [Concomitant]
     Dates: start: 20081021, end: 20090206
  3. DEXAMETHASONE [Concomitant]
     Dates: start: 20081021, end: 20090206
  4. RITUXIMAB [Concomitant]
     Dates: start: 20081021, end: 20090203
  5. CYCLOPHOSPHAMIDE [Concomitant]
     Dates: start: 20081021, end: 20090205
  6. DOXORUBICIN HCL [Concomitant]
     Dates: start: 20081021, end: 20090205
  7. VINCRISTINE [Concomitant]
     Dates: start: 20081021, end: 20090205

REACTIONS (1)
  - PNEUMONIA [None]
